FAERS Safety Report 5882486-9 (Version None)
Quarter: 2008Q3

REPORT INFORMATION
  Report Type: 
  Country: None (occurrence: None)
  Receive Date: 20080913
  Receipt Date: 20080805
  Transmission Date: 20090109
  Serious: No
  Sender: FDA-Public Use
  Company Number: US-ABBOTT-08P-163-0469254-00

PATIENT
  Sex: Male
  Weight: 89.075 kg

DRUGS (10)
  1. HUMIRA [Suspect]
     Indication: RHEUMATOID ARTHRITIS
     Route: 058
  2. ATENOLOL [Concomitant]
     Indication: HYPERTENSION
     Route: 048
  3. CLOPIDOGREL [Concomitant]
     Indication: BLOOD CHOLESTEROL
     Route: 048
  4. DILTIAZEM HCL [Concomitant]
     Indication: CARDIAC DISORDER
     Route: 048
  5. INSULIN ASPART [Concomitant]
     Indication: DIABETES MELLITUS
     Route: 058
  6. NOVALIN INSULIN [Concomitant]
     Indication: DIABETES MELLITUS
     Route: 058
  7. METFORMIN HCL [Concomitant]
     Indication: DIABETES MELLITUS
     Route: 048
  8. METHOTREXATE [Concomitant]
     Indication: RHEUMATOID ARTHRITIS
  9. OMEPRAZOLE SODIUM [Concomitant]
     Indication: HIATUS HERNIA
     Route: 048
  10. TRAMADOL HCL [Concomitant]
     Indication: PAIN
     Route: 048

REACTIONS (1)
  - ACCIDENTAL EXPOSURE [None]
